FAERS Safety Report 10195262 (Version 1)
Quarter: 2014Q2

REPORT INFORMATION
  Report Type: Spontaneous
  Country: IT (occurrence: IT)
  Receive Date: 20140526
  Receipt Date: 20140526
  Transmission Date: 20141212
  Serious: Yes (Hospitalization)
  Sender: FDA-Public Use
  Company Number: IT-BRISTOL-MYERS SQUIBB COMPANY-20759031

PATIENT
  Age: 71 Year
  Sex: Male

DRUGS (5)
  1. COUMADIN TABS 5 MG [Suspect]
     Indication: ATRIAL FIBRILLATION
     Dosage: INTRPTD ON: 15APR14?DOSAGE: 1/UNIT
     Route: 048
     Dates: start: 20140101
  2. CORDARONE [Suspect]
     Indication: ATRIAL FIBRILLATION
     Dosage: TABS
     Route: 048
     Dates: start: 20140415, end: 20140428
  3. METFORMIN [Concomitant]
     Route: 048
  4. GLIBEN [Concomitant]
     Route: 048
  5. DILZENE [Concomitant]
     Route: 048

REACTIONS (3)
  - Cardiac failure [Unknown]
  - Respiratory failure [Unknown]
  - Overdose [Unknown]
